FAERS Safety Report 6135952-5 (Version None)
Quarter: 2009Q1

REPORT INFORMATION
  Report Type: 
  Country: None (occurrence: None)
  Receive Date: 20090329
  Receipt Date: 20090109
  Transmission Date: 20090719
  Serious: No
  Sender: FDA-Public Use
  Company Number: US-BAUSCH-2009BL000111

PATIENT
  Age: 50 Year
  Sex: Female

DRUGS (2)
  1. ALAWAY [Suspect]
     Indication: ALLERGY TO ANIMAL
     Route: 047
     Dates: start: 20090108, end: 20090108
  2. ALLEGRA-D /01367401/ [Concomitant]
     Indication: MULTIPLE ALLERGIES
     Route: 048

REACTIONS (4)
  - DRUG HYPERSENSITIVITY [None]
  - EYE IRRITATION [None]
  - EYELID OEDEMA [None]
  - OCULAR HYPERAEMIA [None]
